FAERS Safety Report 7911963-1 (Version None)
Quarter: 2011Q4

REPORT INFORMATION
  Report Type: 
  Country: None (occurrence: None)
  Receive Date: 20111114
  Receipt Date: 20111109
  Transmission Date: 20120403
  Serious: Yes (Other)
  Sender: FDA-Public Use
  Company Number: GB-TEVA-308602ISR

PATIENT
  Age: 48 Year
  Sex: Male

DRUGS (2)
  1. METHOTREXATE [Suspect]
     Dosage: 7.5 MG, UNK
     Dates: start: 20090101
  2. ENBREL [Suspect]
     Dosage: 50 MG, UNK
     Dates: start: 20090101

REACTIONS (1)
  - KERATITIS [None]
